FAERS Safety Report 4716972-1 (Version None)
Quarter: 2005Q3

REPORT INFORMATION
  Report Type: 
  Country: None (occurrence: None)
  Receive Date: 20050714
  Receipt Date: 20050712
  Transmission Date: 20060218
  Serious: Yes (Hospitalization)
  Sender: FDA-Public Use
  Company Number: S05-USA-02788-01

PATIENT
  Age: 88 Year
  Sex: Female

DRUGS (3)
  1. LEVOTHROID [Suspect]
     Indication: HYPOTHYROIDISM
     Dosage: 112.5 MCG QD PO
     Route: 048
     Dates: end: 20050501
  2. LEVOTHROID [Suspect]
     Indication: HYPOTHYROIDISM
     Dosage: 112.5 MCG QD PO
     Route: 048
     Dates: start: 20050501
  3. NITROFURANTOIN [Suspect]
     Indication: PROPHYLAXIS
     Dates: end: 20050101

REACTIONS (2)
  - ABDOMINAL DISTENSION [None]
  - DIARRHOEA [None]
